FAERS Safety Report 6608214-7 (Version None)
Quarter: 2010Q1

REPORT INFORMATION
  Report Type: 
  Country: None (occurrence: None)
  Receive Date: 20100301
  Receipt Date: 20100222
  Transmission Date: 20100710
  Serious: Yes (Other)
  Sender: FDA-Public Use
  Company Number: US-BRISTOL-MYERS SQUIBB COMPANY-14990857

PATIENT
  Sex: Female

DRUGS (2)
  1. ABILIFY [Suspect]
     Indication: DEPRESSION
  2. EFFEXOR [Suspect]
     Indication: DEPRESSION

REACTIONS (4)
  - ANXIETY [None]
  - BRONCHOPNEUMONIA [None]
  - DRUG INEFFECTIVE [None]
  - MUSCLE RIGIDITY [None]
